FAERS Safety Report 25429622 (Version 1)
Quarter: 2025Q2

REPORT INFORMATION
  Report Type: Spontaneous
  Country: US (occurrence: None)
  Receive Date: 20250612
  Receipt Date: 20250612
  Transmission Date: 20250716
  Serious: No
  Sender: FDA-CTU
  Company Number: None

PATIENT
  Age: 44 Year
  Sex: Female

DRUGS (2)
  1. OLUMIANT [Suspect]
     Active Substance: BARICITINIB
     Indication: Rash
     Dosage: FREQUENCY : DAILY;?
     Route: 048
     Dates: start: 202504
  2. ASPIRIN [Suspect]
     Active Substance: ASPIRIN

REACTIONS (1)
  - Pneumonia [None]
